FAERS Safety Report 10250218 (Version 1)
Quarter: 2014Q2

REPORT INFORMATION
  Report Type: Spontaneous
  Country: US (occurrence: US)
  Receive Date: 20140620
  Receipt Date: 20140620
  Transmission Date: 20141212
  Serious: Yes (Hospitalization)
  Sender: FDA-Public Use
  Company Number: US-BAYER-2014-089601

PATIENT
  Age: 19 Year
  Sex: Female
  Weight: 77 kg

DRUGS (4)
  1. YAZ [Suspect]
     Dosage: UNK
  2. YASMIN [Suspect]
  3. IRON SULFATE [Concomitant]
  4. VITAMIN D [Concomitant]

REACTIONS (4)
  - Deep vein thrombosis [Recovering/Resolving]
  - Pelvic venous thrombosis [Recovering/Resolving]
  - Vena cava thrombosis [None]
  - Thrombophlebitis superficial [None]
